FAERS Safety Report 13704795 (Version 1)
Quarter: 2017Q2

REPORT INFORMATION
  Report Type: Spontaneous
  Country: US (occurrence: US)
  Receive Date: 20170629
  Receipt Date: 20170629
  Transmission Date: 20170830
  Serious: No
  Sender: FDA-Public Use
  Company Number: None

PATIENT
  Age: 58 Year
  Sex: Female

DRUGS (1)
  1. OMNITROPE [Suspect]
     Active Substance: SOMATROPIN

REACTIONS (5)
  - Head discomfort [None]
  - Weight increased [None]
  - Oedema peripheral [None]
  - Ocular discomfort [None]
  - Petechiae [None]

NARRATIVE: CASE EVENT DATE: 20170615
